FAERS Safety Report 22520764 (Version 1)
Quarter: 2023Q2

REPORT INFORMATION
  Report Type: Spontaneous
  Country: KR (occurrence: KR)
  Receive Date: 20230605
  Receipt Date: 20230605
  Transmission Date: 20230722
  Serious: Yes (Death)
  Sender: FDA-Public Use
  Company Number: KR-ELI_LILLY_AND_COMPANY-KR202306001284

PATIENT
  Age: 49 Year
  Sex: Male

DRUGS (2)
  1. CYRAMZA [Suspect]
     Active Substance: RAMUCIRUMAB
     Indication: Product used for unknown indication
     Dosage: 800 MG, UNKNOWN (1ST DOSE)
     Route: 042
     Dates: start: 20230407, end: 20230407
  2. CYRAMZA [Suspect]
     Active Substance: RAMUCIRUMAB
     Dosage: 800 MG, UNKNOWN (2ND DOSE)
     Route: 042
     Dates: start: 20230430, end: 20230430

REACTIONS (2)
  - Death [Fatal]
  - Inappropriate schedule of product administration [Unknown]

NARRATIVE: CASE EVENT DATE: 20230430
